FAERS Safety Report 8565696 (Version 3)
Quarter: 2012Q4

REPORT INFORMATION
  Report Type: 
  Country: US (occurrence: US)
  Receive Date: 20120516
  Receipt Date: 20121023
  Transmission Date: 20130627
  Serious: No
  Sender: FDA-Public Use
  Company Number: US-ASTRAZENECA-2012SE29854

PATIENT
  Age: 54 Year
  Sex: Female

DRUGS (12)
  1. SEROQUEL XR [Suspect]
     Indication: SLEEP DISORDER
     Route: 048
     Dates: start: 201203
  2. SEROQUEL XR [Suspect]
     Indication: ATTENTION DEFICIT/HYPERACTIVITY DISORDER
     Route: 048
     Dates: start: 201203
  3. SEROQUEL XR [Suspect]
     Indication: DEMENTIA
     Route: 048
     Dates: start: 201203
  4. SEROQUEL XR [Suspect]
     Indication: CEREBRAL HAEMORRHAGE
     Route: 048
     Dates: start: 201203
  5. SEROQUEL XR [Suspect]
     Indication: SLEEP DISORDER
     Route: 048
  6. SEROQUEL XR [Suspect]
     Indication: ATTENTION DEFICIT/HYPERACTIVITY DISORDER
     Route: 048
  7. SEROQUEL XR [Suspect]
     Indication: DEMENTIA
     Route: 048
  8. SEROQUEL XR [Suspect]
     Indication: CEREBRAL HAEMORRHAGE
     Route: 048
  9. SEROQUEL XR [Suspect]
     Indication: SLEEP DISORDER
     Route: 048
  10. SEROQUEL XR [Suspect]
     Indication: ATTENTION DEFICIT/HYPERACTIVITY DISORDER
     Route: 048
  11. SEROQUEL XR [Suspect]
     Indication: DEMENTIA
     Route: 048
  12. SEROQUEL XR [Suspect]
     Indication: CEREBRAL HAEMORRHAGE
     Route: 048

REACTIONS (4)
  - Insomnia [Unknown]
  - Drug resistance [Unknown]
  - Off label use [Unknown]
  - Drug dispensing error [Unknown]
